FAERS Safety Report 8287382-8 (Version None)
Quarter: 2012Q2

REPORT INFORMATION
  Report Type: 
  Country: None (occurrence: None)
  Receive Date: 20120416
  Receipt Date: 20120410
  Transmission Date: 20120825
  Serious: Yes (Other)
  Sender: FDA-Public Use
  Company Number: US-PFIZER INC-2012089729

PATIENT
  Sex: Male
  Weight: 113 kg

DRUGS (5)
  1. LIPITOR [Suspect]
     Indication: BLOOD CHOLESTEROL INCREASED
     Dosage: 40 MG, ONCE A DAY
     Route: 048
     Dates: start: 20120403
  2. LIPITOR [Suspect]
     Indication: BLOOD PRESSURE INCREASED
  3. METOPROLOL [Concomitant]
     Dosage: UNK
  4. LORAZEPAM [Concomitant]
     Dosage: UNK
  5. VITAMIN TAB [Concomitant]
     Dosage: UNK

REACTIONS (2)
  - NEPHROLITHIASIS [None]
  - RENAL PAIN [None]
